FAERS Safety Report 4339609-2 (Version None)
Quarter: 2004Q1

REPORT INFORMATION
  Report Type: 
  Country: None (occurrence: None)
  Receive Date: 20040329
  Receipt Date: 20040105
  Transmission Date: 20041129
  Serious: No
  Sender: FDA-Public Use
  Company Number: 04P-163-0246380-00

PATIENT
  Age: 59 Year
  Sex: Female
  Weight: 110.6777 kg

DRUGS (15)
  1. HUMIRA [Suspect]
     Indication: RHEUMATOID ARTHRITIS
     Dosage: 40 MG, 1 IN 2 WK, SUBCUTANEOUS
     Route: 058
     Dates: start: 20030801, end: 20031221
  2. DYAZIDE [Concomitant]
  3. PAROXETINE HCL [Concomitant]
  4. INFLUENZA VACCINE [Concomitant]
  5. DIGOXIN [Concomitant]
  6. LANSOPRAZOLE [Concomitant]
  7. AMLODIPINE BESYLATE [Concomitant]
  8. ATENOLOL [Concomitant]
  9. METHOTREXATE [Concomitant]
  10. ANCOVERT [Concomitant]
  11. VICODIN [Concomitant]
  12. PSEUDO-GUAF [Concomitant]
  13. ESTROPIPATE [Concomitant]
  14. AMPRACOLAM [Concomitant]
  15. DIAZEPAM [Concomitant]

REACTIONS (5)
  - EAR PAIN [None]
  - ERYTHEMA [None]
  - LABYRINTHITIS [None]
  - OEDEMA PERIPHERAL [None]
  - SINUSITIS [None]
